FAERS Safety Report 5679803-1 (Version None)
Quarter: 2008Q1

REPORT INFORMATION
  Report Type: 
  Country: None (occurrence: None)
  Receive Date: 20080321
  Receipt Date: 20080305
  Transmission Date: 20080703
  Serious: Yes (Hospitalization, Other)
  Sender: FDA-Public Use
  Company Number: 2007JP005799

PATIENT
  Sex: Male
  Weight: 45.8 kg

DRUGS (13)
  1. PROGRAF [Suspect]
     Indication: SMALL INTESTINE TRANSPLANT
     Dosage: 4 MG, BID, ORAL; ORAL
     Route: 048
  2. MEDROL [Suspect]
     Dosage: 8 MG, BID, ORAL
     Route: 048
  3. SULFAMETHOXAZOLE AND TRIMETHOPRIM [Suspect]
     Dosage: 0.5 G, TID, ORAL
     Route: 048
  4. VALGANCICLOVIR HCL [Suspect]
  5. RAPAMUNE [Suspect]
  6. ANTI-IL-2 RECEPTOR ANTIBODY FORMULATION UNKNOWN [Concomitant]
  7. FUNGIZONE SYRUP [Concomitant]
  8. DIOVAN [Concomitant]
  9. MIYA-BM (CLOSTRIDIUM BUTYRICUM) FINE GRANULE [Concomitant]
  10. ENTERONON R (STREPTOCOCCUS FAECALIS, LACTOBACILLUS ACIDOPHILUS, STREPT [Concomitant]
  11. POLYMYXIN B SULFATE (POLYMYXIN B SULFATE) POWDER [Concomitant]
  12. MARZULENE S (LEVOGLUTAMIDE, SODIUM GUALENATE) GRANULE [Concomitant]
  13. TAKEPRON (LANSOPRAZOLE) ORODISPERSIBLE CR TABLET [Concomitant]

REACTIONS (9)
  - CATHETER RELATED INFECTION [None]
  - CYTOMEGALOVIRUS ENTEROCOLITIS [None]
  - DEHYDRATION [None]
  - ELECTROLYTE IMBALANCE [None]
  - GRAFT COMPLICATION [None]
  - HYPERKALAEMIA [None]
  - POLYURIA [None]
  - PROCTOCOLITIS [None]
  - RENAL IMPAIRMENT [None]
